FAERS Safety Report 8129859-1 (Version None)
Quarter: 2011Q4

REPORT INFORMATION
  Report Type: 
  Country: None (occurrence: None)
  Receive Date: 20111227
  Receipt Date: 20111003
  Transmission Date: 20120403
  Serious: No
  Sender: FDA-Public Use
  Company Number: PHEH2011US00761

PATIENT
  Age: 43 Year
  Sex: Male
  Weight: 67 kg

DRUGS (3)
  1. VITAMIN D (ERGOCALCIFERON) [Concomitant]
  2. ATURIN [Concomitant]
  3. GILENYA [Suspect]
     Indication: MULTIPLE SCLEROSIS
     Dosage: 0.5 MG, QD, ORAL
     Route: 048
     Dates: start: 20110802

REACTIONS (3)
  - FEELING ABNORMAL [None]
  - NAUSEA [None]
  - PAIN [None]
